FAERS Safety Report 24169142 (Version 1)
Quarter: 2024Q3

REPORT INFORMATION
  Report Type: Spontaneous
  Country: US (occurrence: None)
  Receive Date: 20240802
  Receipt Date: 20240802
  Transmission Date: 20241017
  Serious: No
  Sender: ASTRAZENECA
  Company Number: 2024A171462

PATIENT
  Sex: Female

DRUGS (2)
  1. TRUQAP [Suspect]
     Active Substance: CAPIVASERTIB
     Route: 048
  2. LOMOTIL [Concomitant]
     Active Substance: ATROPINE SULFATE\DIPHENOXYLATE HYDROCHLORIDE

REACTIONS (3)
  - Diarrhoea [Unknown]
  - Rash [Unknown]
  - Ill-defined disorder [Unknown]
